FAERS Safety Report 6158427-6 (Version None)
Quarter: 2009Q2

REPORT INFORMATION
  Report Type: 
  Country: None (occurrence: None)
  Receive Date: 20090417
  Receipt Date: 20090414
  Transmission Date: 20091009
  Serious: Yes (Hospitalization)
  Sender: FDA-Public Use
  Company Number: GB-BRISTOL-MYERS SQUIBB COMPANY-14574842

PATIENT
  Age: 27 Year
  Sex: Female

DRUGS (9)
  1. ABILIFY [Suspect]
     Dosage: 10MG REINSTATED. AFER 3 MONTHS DOSE INCREASED TO 20MG DAILY
  2. CHLORPROMAZINE [Concomitant]
  3. QUETIAPINE FUMARATE [Concomitant]
  4. RISPERIDONE [Concomitant]
  5. AMISULPRIDE [Concomitant]
  6. SULPIRIDE [Concomitant]
  7. DIAZEPAM [Concomitant]
  8. LITHIUM CARBONATE [Concomitant]
  9. HALOPERIDOL [Concomitant]

REACTIONS (3)
  - DELUSION [None]
  - MANIA [None]
  - PREGNANCY [None]
